FAERS Safety Report 6698376 (Version 9)
Quarter: 2015Q3

REPORT INFORMATION
  Report Type: Spontaneous
  Country: US (occurrence: US)
  Receive Date: 20080714
  Receipt Date: 20150727
  Transmission Date: 20151125
  Serious: Yes (Hospitalization)
  Sender: FDA-Public Use
  Company Number: US-BAYER-200813317NA

PATIENT
  Age: 30 Year
  Sex: Female
  Weight: 61.36 kg

DRUGS (2)
  1. PROZAC [Concomitant]
     Active Substance: FLUOXETINE HYDROCHLORIDE
     Indication: ANXIETY
     Dosage: 10 MG (DAILY DOSE), QD, ORAL
     Route: 048
     Dates: start: 200712
  2. MIRENA [Suspect]
     Active Substance: LEVONORGESTREL
     Indication: MENORRHAGIA
     Dosage: 20 MCG/24HR, CONT
     Route: 015
     Dates: start: 20070515, end: 20130521

REACTIONS (23)
  - Anxiety [None]
  - Abortion missed [None]
  - Polymenorrhoea [Not Recovered/Not Resolved]
  - Menorrhagia [Not Recovered/Not Resolved]
  - Diarrhoea [Not Recovered/Not Resolved]
  - Quality of life decreased [None]
  - Uterine perforation [None]
  - Pregnancy with contraceptive device [None]
  - Hot flush [Not Recovered/Not Resolved]
  - Abdominal distension [Not Recovered/Not Resolved]
  - Grief reaction [None]
  - Emotional distress [None]
  - Depression [Not Recovered/Not Resolved]
  - Injury [None]
  - Scar [None]
  - Menstruation irregular [Not Recovered/Not Resolved]
  - Menorrhagia [None]
  - Flank pain [None]
  - Mood swings [Not Recovered/Not Resolved]
  - Flatulence [Not Recovered/Not Resolved]
  - Abdominal pain upper [None]
  - Device use error [None]
  - Erythema [Not Recovered/Not Resolved]

NARRATIVE: CASE EVENT DATE: 200705
